FAERS Safety Report 19583820 (Version 2)
Quarter: 2021Q3

REPORT INFORMATION
  Report Type: Spontaneous
  Country: JP (occurrence: JP)
  Receive Date: 20210720
  Receipt Date: 20210908
  Transmission Date: 20211014
  Serious: Yes (Other)
  Sender: FDA-Public Use
  Company Number: JP-BAYER-2021-178737

PATIENT
  Age: 38 Year
  Sex: Female

DRUGS (1)
  1. YAZ [Suspect]
     Active Substance: DROSPIRENONE\ETHINYL ESTRADIOL
     Indication: DYSMENORRHOEA
     Dosage: UNK
     Route: 048
     Dates: start: 202005, end: 20210714

REACTIONS (1)
  - Amaurosis fugax [None]

NARRATIVE: CASE EVENT DATE: 20210719
